FAERS Safety Report 25348318 (Version 1)
Quarter: 2025Q2

REPORT INFORMATION
  Report Type: Spontaneous
  Country: CN (occurrence: CN)
  Receive Date: 20250522
  Receipt Date: 20250522
  Transmission Date: 20250717
  Serious: Yes (Other)
  Sender: GLAXOSMITHKLINE
  Company Number: CN-GSK-CN2025APC060780

PATIENT

DRUGS (2)
  1. LAMOTRIGINE [Suspect]
     Active Substance: LAMOTRIGINE
     Indication: Emotional disorder
     Dosage: 25 MG, QD
     Route: 048
     Dates: start: 20250416, end: 20250508
  2. ALPRAZOLAM [Suspect]
     Active Substance: ALPRAZOLAM
     Indication: Emotional disorder
     Dosage: 0.20 MG
     Route: 048
     Dates: start: 20250416, end: 20250508

REACTIONS (11)
  - Dizziness [Recovered/Resolved]
  - Headache [Recovered/Resolved]
  - Vomiting [Recovered/Resolved]
  - Mood swings [Recovered/Resolved]
  - Gait disturbance [Recovered/Resolved]
  - Tremor [Recovered/Resolved]
  - Erythema [Not Recovered/Not Resolved]
  - Toxicity to various agents [Recovered/Resolved]
  - Pharyngitis [Not Recovered/Not Resolved]
  - Bacterial infection [Recovered/Resolved]
  - Overdose [Unknown]

NARRATIVE: CASE EVENT DATE: 20250508
